FAERS Safety Report 9706493 (Version 4)
Quarter: 2014Q1

REPORT INFORMATION
  Report Type: Report from Study
  Country: FR (occurrence: FR)
  Receive Date: 20131125
  Receipt Date: 20140214
  Transmission Date: 20141002
  Serious: Yes (Hospitalization)
  Sender: FDA-Public Use
  Company Number: FR-ROCHE-1298325

PATIENT
  Age: 65 Year
  Sex: Female
  Weight: 57 kg

DRUGS (10)
  1. PERTUZUMAB [Suspect]
     Indication: HER-2 POSITIVE BREAST CANCER
     Dosage: LOADING DOSE
     Route: 042
     Dates: start: 20130716, end: 20130716
  2. PERTUZUMAB [Suspect]
     Dosage: MAINTENANCE DOSE?DATE OF LAST DOSE PRIOR TO SAE: 09/OCT/2013
     Route: 042
     Dates: start: 20130806, end: 20131030
  3. TRASTUZUMAB [Suspect]
     Indication: HER-2 POSITIVE BREAST CANCER
     Dosage: LOADING DOSE (8MG/KG, AS PER PROTOCOL)
     Route: 042
     Dates: start: 20130717, end: 20130717
  4. TRASTUZUMAB [Suspect]
     Dosage: MAINTENANCE DOSE (6MG/KG, AS PER PROTOCOL)?DATE OF LAST DOSE PRIOR TO SAE: 09/OCT/2013
     Route: 042
     Dates: start: 20130807, end: 20131030
  5. VINORELBINE [Suspect]
     Indication: HER-2 POSITIVE BREAST CANCER
     Dosage: 25MG/MG2 DAY 1 AND 8 OF CYCLE 1, FOLLOWED BY 30-35MG/M2 ON DAY 1 AND 8 OF SUSBEQUENT CYCLES.?DATE OF
     Route: 042
     Dates: start: 20130717, end: 20131030
  6. LEVOTHYROX [Concomitant]
     Route: 065
     Dates: start: 2003
  7. SMECTA (FRANCE) [Concomitant]
     Route: 065
     Dates: start: 20130724, end: 20131030
  8. TIORFAN [Concomitant]
     Route: 065
     Dates: start: 20130717, end: 20131030
  9. LOPERAMIDE [Concomitant]
     Route: 065
     Dates: start: 20130724
  10. CLINUTREN [Concomitant]
     Route: 065
     Dates: start: 20130918

REACTIONS (1)
  - Diarrhoea [Recovered/Resolved with Sequelae]
